FAERS Safety Report 6666748-3 (Version None)
Quarter: 2010Q2

REPORT INFORMATION
  Report Type: 
  Country: None (occurrence: None)
  Receive Date: 20100405
  Receipt Date: 20100322
  Transmission Date: 20101027
  Serious: Yes (Other)
  Sender: FDA-Public Use
  Company Number: GB-RANBAXY-2010RR-32814

PATIENT
  Sex: Male

DRUGS (8)
  1. RANITIDINE [Suspect]
  2. BISOPROLOL [Suspect]
  3. EDRONAX [Suspect]
     Indication: DEPRESSION
     Dosage: UNK
     Dates: start: 20100223
  4. BENDROFLUMETHIAZIDE [Suspect]
  5. COLOFAC [Suspect]
     Indication: IRRITABLE BOWEL SYNDROME
  6. DOXAZOSIN MESYLATE [Suspect]
  7. MOTILIUM [Suspect]
  8. NEXIUM [Suspect]

REACTIONS (3)
  - DRUG INTERACTION [None]
  - FATIGUE [None]
  - SEDATION [None]
